FAERS Safety Report 9515358 (Version 3)
Quarter: 2014Q1

REPORT INFORMATION
  Report Type: Spontaneous
  Country: US (occurrence: US)
  Receive Date: 20130911
  Receipt Date: 20140123
  Transmission Date: 20141002
  Serious: Yes (Life-Threatening, Hospitalization)
  Sender: FDA-Public Use
  Company Number: US-BAYER-2013-106552

PATIENT
  Age: 46 Year
  Sex: Female
  Weight: 81.65 kg

DRUGS (10)
  1. YAZ [Suspect]
     Indication: PREMENSTRUAL DYSPHORIC DISORDER
     Dosage: UNK
     Dates: start: 200705, end: 201301
  2. YASMIN [Suspect]
     Indication: PREMENSTRUAL DYSPHORIC DISORDER
     Dosage: UNK
     Dates: start: 200705, end: 201301
  3. OCELLA [Suspect]
     Indication: PREMENSTRUAL DYSPHORIC DISORDER
     Dosage: UNK
     Dates: start: 200705, end: 201301
  4. SODIUM SULFACETAMIDE [Concomitant]
     Dosage: 1-2 TIMES A DAY
     Route: 061
  5. ZOFRAN [Concomitant]
  6. MORPHINE [Concomitant]
  7. ATIVAN [Concomitant]
  8. XANAX [Concomitant]
     Indication: ANXIETY
  9. ZYRTEC [Concomitant]
     Indication: MULTIPLE ALLERGIES
     Dosage: 2-3 TIMES WEEKLY
  10. VITAMIN D [Concomitant]

REACTIONS (7)
  - Bundle branch block right [None]
  - Pulmonary embolism [Recovered/Resolved]
  - Deep vein thrombosis [Recovering/Resolving]
  - Injury [Recovering/Resolving]
  - Emotional distress [None]
  - Fear [None]
  - Off label use [None]
